FAERS Safety Report 11230479 (Version 1)
Quarter: 2015Q2

REPORT INFORMATION
  Report Type: Spontaneous
  Country: US (occurrence: None)
  Receive Date: 20150629
  Receipt Date: 20150629
  Transmission Date: 20150821
  Serious: Yes (Hospitalization)
  Sender: FDA-Public Use
  Company Number: CO-PR-US-2015-001

PATIENT
  Age: 47 Year
  Sex: Female

DRUGS (3)
  1. PARNATE [Suspect]
     Active Substance: TRANYLCYPROMINE SULFATE
     Indication: DEPRESSION
  2. TRANYLCYPROMINE [Suspect]
     Active Substance: TRANYLCYPROMINE
     Dates: start: 2001
  3. TRANYLCYPROMINE [Suspect]
     Active Substance: TRANYLCYPROMINE
     Indication: DEPRESSION
     Dates: start: 2001

REACTIONS (10)
  - Psychiatric symptom [None]
  - Intentional product use issue [None]
  - Off label use [None]
  - Product quality issue [None]
  - Prescribed overdose [None]
  - Product substitution issue [None]
  - Drug effect incomplete [None]
  - Depressed mood [None]
  - Depression [None]
  - Therapeutic response changed [None]
